FAERS Safety Report 25606336 (Version 2)
Quarter: 2025Q4

REPORT INFORMATION
  Report Type: Spontaneous
  Country: US (occurrence: US)
  Receive Date: 20250725
  Receipt Date: 20251001
  Transmission Date: 20260118
  Serious: No
  Sender: BRISTOL-MYERS SQUIBB COMPANY
  Company Number: US-BRISTOL-MYERS SQUIBB COMPANY-2025-103909

PATIENT
  Age: 63 Year
  Sex: Female
  Weight: 80.74 kg

DRUGS (1)
  1. POMALYST [Suspect]
     Active Substance: POMALIDOMIDE
     Indication: Primary amyloidosis
     Dosage: 2 WEEKS ON, 1 WEEK OFF

REACTIONS (5)
  - Urinary tract infection [Recovering/Resolving]
  - Platelet count decreased [Recovering/Resolving]
  - Off label use [Unknown]
  - Nasopharyngitis [Unknown]
  - Limb injury [Unknown]
